FAERS Safety Report 8781300 (Version 1)
Quarter: 2012Q4

REPORT INFORMATION
  Report Type: 
  Country: US (occurrence: US)
  Receive Date: 20120913
  Receipt Date: 20120913
  Transmission Date: 20130627
  Serious: No
  Sender: FDA-Public Use
  Company Number: US-009507513-1208USA008265

PATIENT

DRUGS (1)
  1. AZASITE [Suspect]
     Indication: CONJUNCTIVITIS BACTERIAL
     Dosage: Drops 1%, instill 1 drop in the affected eye(s) twice daily
     Route: 047
     Dates: start: 201208

REACTIONS (1)
  - Eye irritation [Recovered/Resolved]
